FAERS Safety Report 17584834 (Version 3)
Quarter: 2020Q2

REPORT INFORMATION
  Report Type: Spontaneous
  Country: CA (occurrence: CA)
  Receive Date: 20200326
  Receipt Date: 20200624
  Transmission Date: 20200713
  Serious: Yes (Death, Hospitalization)
  Sender: FDA-Public Use
  Company Number: CA-PFIZER INC-2020125843

PATIENT
  Age: 39 Year
  Sex: Male

DRUGS (1)
  1. ZIRABEV [Suspect]
     Active Substance: BEVACIZUMAB-BVZR
     Dosage: 612 MG EVERY 2 WEEKS
     Route: 042
     Dates: start: 20200121, end: 20200218

REACTIONS (2)
  - Death [Fatal]
  - Cardiac disorder [Unknown]
